FAERS Safety Report 17655011 (Version 1)
Quarter: 2020Q2

REPORT INFORMATION
  Report Type: Spontaneous
  Country: JP (occurrence: JP)
  Receive Date: 20200410
  Receipt Date: 20200410
  Transmission Date: 20200713
  Serious: Yes (Other)
  Sender: FDA-Public Use
  Company Number: NVSJ2020JP004157

PATIENT
  Age: 83 Year
  Sex: Female

DRUGS (1)
  1. NEORAL [Suspect]
     Active Substance: CYCLOSPORINE
     Indication: APLASTIC ANAEMIA
     Dosage: 200 MG
     Route: 048

REACTIONS (3)
  - Renal impairment [Unknown]
  - Blood creatinine increased [Unknown]
  - Product use in unapproved indication [Unknown]
